FAERS Safety Report 6195207-X (Version None)
Quarter: 2009Q2

REPORT INFORMATION
  Report Type: 
  Country: None (occurrence: None)
  Receive Date: 20090519
  Receipt Date: 20090510
  Transmission Date: 20091009
  Serious: Yes (Hospitalization, Other)
  Sender: FDA-Public Use
  Company Number: US-MERCK-0905USA01585

PATIENT
  Age: 68 Year
  Sex: Male

DRUGS (9)
  1. REVLIMID [Suspect]
     Indication: MULTIPLE MYELOMA
     Route: 048
     Dates: start: 20081201
  2. LEVAQUIN [Concomitant]
     Indication: PROPHYLAXIS
     Route: 065
  3. LOVENOX [Concomitant]
     Indication: INTERNATIONAL NORMALISED RATIO DECREASED
     Route: 058
  4. DECADRON [Suspect]
     Route: 048
  5. ASPIRIN [Concomitant]
     Route: 048
  6. LACTOBACILLUS ACIDOPHILUS [Concomitant]
     Indication: PROPHYLAXIS AGAINST DIARRHOEA
     Route: 048
  7. WARFARIN [Concomitant]
     Route: 048
  8. AMLODIPINE [Concomitant]
     Indication: BLOOD PRESSURE INCREASED
     Route: 048
  9. PREDNISONE [Concomitant]
     Route: 065

REACTIONS (8)
  - CARDIAC FAILURE ACUTE [None]
  - DEEP VEIN THROMBOSIS [None]
  - PNEUMONIA STAPHYLOCOCCAL [None]
  - RASH [None]
  - RENAL FAILURE ACUTE [None]
  - SEPTIC SHOCK [None]
  - STAPHYLOCOCCAL BACTERAEMIA [None]
  - URINARY RETENTION [None]
